FAERS Safety Report 12709193 (Version 1)
Quarter: 2016Q3

REPORT INFORMATION
  Report Type: Spontaneous
  Country: US (occurrence: None)
  Receive Date: 20160901
  Receipt Date: 20160901
  Transmission Date: 20161109
  Serious: No
  Sender: FDA-Public Use
  Company Number: None

PATIENT
  Age: 39 Year
  Sex: Female
  Weight: 61.24 kg

DRUGS (1)
  1. CLINDAMYCIN [Suspect]
     Active Substance: CLINDAMYCIN\CLINDAMYCIN PHOSPHATE
     Indication: TOOTH ABSCESS
     Dosage: 36 CAPSULE(S) EVERY 4 HOURS TAKEN BY MOUTH
     Route: 048
     Dates: start: 20160830

REACTIONS (1)
  - Night sweats [None]

NARRATIVE: CASE EVENT DATE: 20160831
